FAERS Safety Report 8822644 (Version 2)
Quarter: 2015Q2

REPORT INFORMATION
  Report Type: Report from Study
  Country: US (occurrence: US)
  Receive Date: 20121003
  Receipt Date: 20150629
  Transmission Date: 20150821
  Serious: Yes (Death)
  Sender: FDA-Public Use
  Company Number: US-ROCHE-1096255

PATIENT
  Sex: Female

DRUGS (2)
  1. RITUXAN [Suspect]
     Active Substance: RITUXIMAB
     Indication: COAGULOPATHY
  2. RITUXAN [Suspect]
     Active Substance: RITUXIMAB
     Indication: FACTOR VIII INHIBITION
     Route: 042

REACTIONS (7)
  - Arthralgia [Unknown]
  - Death [Fatal]
  - Swelling [Recovering/Resolving]
  - Musculoskeletal pain [Recovering/Resolving]
  - Hypophagia [Unknown]
  - Asthenia [Unknown]
  - Off label use [Unknown]
